FAERS Safety Report 9574497 (Version 1)
Quarter: 2013Q4

REPORT INFORMATION
  Report Type: Spontaneous
  Country: US (occurrence: US)
  Receive Date: 20131001
  Receipt Date: 20131001
  Transmission Date: 20140711
  Serious: No
  Sender: FDA-Public Use
  Company Number: US-PURDUE-USA-2012-0084343

PATIENT
  Sex: Male

DRUGS (2)
  1. BUTRANS [Suspect]
     Indication: PAIN
     Dosage: UNK
     Route: 062
  2. PERCOCET /00867901/ [Suspect]
     Indication: BREAKTHROUGH PAIN
     Dosage: UNK

REACTIONS (2)
  - Constipation [Unknown]
  - Breakthrough pain [Unknown]
